FAERS Safety Report 9740438 (Version 1)
Quarter: 2013Q4

REPORT INFORMATION
  Report Type: Spontaneous
  Country: US (occurrence: US)
  Receive Date: 20131209
  Receipt Date: 20131209
  Transmission Date: 20140711
  Serious: Yes (Hospitalization, Other)
  Sender: FDA-Public Use
  Company Number: US-VERTEX PHARMACEUTICALS INC-2013-011618

PATIENT
  Age: 56 Year
  Sex: Female
  Weight: 83.9 kg

DRUGS (5)
  1. INCIVEK [Suspect]
     Indication: HEPATITIS C
     Dosage: 750 MG, TID
     Dates: end: 20131127
  2. RIBAVIRIN [Suspect]
     Indication: HEPATITIS C
     Dosage: 2 DF, BID
     Dates: end: 20131127
  3. PEGASYS [Suspect]
     Indication: HEPATITIS C
     Dosage: 180 ?G, QW
     Route: 058
     Dates: end: 20131127
  4. PROGRAF [Suspect]
     Indication: IMMUNOSUPPRESSION
     Dosage: 0.5 MG, BID
  5. PROGRAF [Suspect]
     Dosage: 0.5 MG, TWICE A WEEK

REACTIONS (8)
  - Abdominal pain upper [Recovered/Resolved]
  - Blood glucose increased [Recovered/Resolved]
  - Dysuria [Recovered/Resolved]
  - Pulmonary oedema [Not Recovered/Not Resolved]
  - Vomiting [Recovered/Resolved]
  - Diarrhoea [Recovered/Resolved]
  - Off label use [Unknown]
  - Overdose [Unknown]
